FAERS Safety Report 5046856-3 (Version None)
Quarter: 2006Q3

REPORT INFORMATION
  Report Type: 
  Country: None (occurrence: None)
  Receive Date: 20060705
  Receipt Date: 20060705
  Transmission Date: 20061208
  Serious: Yes (Other)
  Sender: FDA-Public Use
  Company Number: None

PATIENT
  Age: 46 Year
  Sex: Female
  Weight: 52.1637 kg

DRUGS (2)
  1. ZOLOFT [Suspect]
     Indication: ANXIETY
     Dates: start: 20041001, end: 20060703
  2. ZOLOFT [Suspect]
     Indication: PANIC DISORDER
     Dates: start: 20041001, end: 20060703

REACTIONS (2)
  - LOSS OF LIBIDO [None]
  - SEXUAL DYSFUNCTION [None]
